FAERS Safety Report 11212760 (Version 1)
Quarter: 2015Q2

REPORT INFORMATION
  Report Type: Spontaneous
  Country: US (occurrence: None)
  Receive Date: 20150622
  Receipt Date: 20150622
  Transmission Date: 20150821
  Serious: No
  Sender: FDA-Public Use
  Company Number: None

PATIENT
  Age: 61 Year
  Sex: Female
  Weight: 47.63 kg

DRUGS (8)
  1. SOOLANTRA [Suspect]
     Active Substance: IVERMECTIN
     Indication: RASH PUSTULAR
     Dosage: ONCE A DAY TO POSTULES?ONCE DAILY?APPLIED TO A SURFACE, USUALLY THE SKIN
     Route: 061
     Dates: start: 20150615, end: 20150617
  2. SOOLANTRA [Suspect]
     Active Substance: IVERMECTIN
     Indication: ROSACEA
     Dosage: ONCE A DAY TO POSTULES?ONCE DAILY?APPLIED TO A SURFACE, USUALLY THE SKIN
     Route: 061
     Dates: start: 20150615, end: 20150617
  3. MULTI-VITAMINS (CALCIUM PANTOTHENATE, FOLIC ACID, VITAMINS NOS) [Concomitant]
     Active Substance: VITAMINS
  4. BENADRYL [Concomitant]
     Active Substance: DIPHENHYDRAMINE HYDROCHLORIDE
  5. LOW DOSE ASPIRIN [Concomitant]
     Active Substance: ASPIRIN
  6. ZYRTEC [Concomitant]
     Active Substance: CETIRIZINE HYDROCHLORIDE
  7. SOOLANTRA [Suspect]
     Active Substance: IVERMECTIN
     Indication: ERYTHEMA
     Dosage: ONCE A DAY TO POSTULES?ONCE DAILY?APPLIED TO A SURFACE, USUALLY THE SKIN
     Route: 061
     Dates: start: 20150615, end: 20150617
  8. CITRACEL (CALCIUM + VITAMIN D) [Concomitant]

REACTIONS (2)
  - Ocular hyperaemia [None]
  - Rosacea [None]

NARRATIVE: CASE EVENT DATE: 20150618
